FAERS Safety Report 26087365 (Version 1)
Quarter: 2025Q4

REPORT INFORMATION
  Report Type: Spontaneous
  Country: US (occurrence: US)
  Receive Date: 20251125
  Receipt Date: 20251125
  Transmission Date: 20260118
  Serious: Yes (Other)
  Sender: COOPERSURGICAL
  Company Number: US-COOPERSURGICAL, INC.-2025CPS008049

PATIENT
  Sex: Female
  Weight: 115.65 kg

DRUGS (3)
  1. PARAGARD T 380A [Suspect]
     Active Substance: COPPER
     Indication: Contraception
     Dosage: UNK
     Route: 015
     Dates: start: 20101202
  2. SYNTHROID [Concomitant]
     Active Substance: LEVOTHYROXINE SODIUM
     Dosage: UNK
     Dates: start: 201004
  3. LEVOXYL [Concomitant]
     Active Substance: LEVOTHYROXINE SODIUM
     Dosage: UNK
     Dates: start: 201004

REACTIONS (18)
  - Ectopic pregnancy with contraceptive device [Recovered/Resolved]
  - Salpingectomy [Recovered/Resolved]
  - Reproductive complication associated with device [Unknown]
  - Device breakage [Not Recovered/Not Resolved]
  - Foreign body in reproductive tract [Not Recovered/Not Resolved]
  - Complication of device removal [Not Recovered/Not Resolved]
  - Embedded device [Unknown]
  - Drug ineffective [Unknown]
  - Emotional distress [Unknown]
  - Procedural pain [Unknown]
  - Tenderness [Unknown]
  - Menstruation irregular [Unknown]
  - Device dislocation [Unknown]
  - Device expulsion [Unknown]
  - Abnormal uterine bleeding [Unknown]
  - Abdominal pain [Unknown]
  - Pelvic pain [Unknown]
  - Vaginal discharge [Unknown]

NARRATIVE: CASE EVENT DATE: 20110101
